FAERS Safety Report 6490304-3 (Version None)
Quarter: 2009Q4

REPORT INFORMATION
  Report Type: 
  Country: None (occurrence: None)
  Receive Date: 20091211
  Receipt Date: 20091130
  Transmission Date: 20100525
  Serious: Yes (Other)
  Sender: FDA-Public Use
  Company Number: US-EISAI INC.-E7273-00117-CLI-US

PATIENT
  Sex: Female

DRUGS (2)
  1. TARGRETIN [Suspect]
     Indication: THYROID CANCER
     Route: 048
     Dates: start: 20091106
  2. FISH OIL CAPSULES [Concomitant]
     Dates: start: 20090918

REACTIONS (1)
  - CHOLECYSTECTOMY [None]
